FAERS Safety Report 6198958-6 (Version None)
Quarter: 2009Q2

REPORT INFORMATION
  Report Type: 
  Country: None (occurrence: None)
  Receive Date: 20090522
  Receipt Date: 20090514
  Transmission Date: 20091009
  Serious: Yes (Other)
  Sender: FDA-Public Use
  Company Number: AU-WYE-G03682309

PATIENT
  Sex: Female

DRUGS (4)
  1. EFFEXOR XR [Suspect]
     Dates: start: 20061101
  2. EFFEXOR XR [Suspect]
     Dates: end: 20070101
  3. EFFEXOR XR [Suspect]
     Dates: start: 20071101, end: 20080501
  4. EFFEXOR XR [Suspect]
     Route: 064
     Dates: start: 20080501

REACTIONS (1)
  - PREMATURE BABY [None]
